FAERS Safety Report 8309607-2 (Version None)
Quarter: 2012Q2

REPORT INFORMATION
  Report Type: 
  Country: None (occurrence: None)
  Receive Date: 20120425
  Receipt Date: 20120329
  Transmission Date: 20120825
  Serious: Yes (Hospitalization)
  Sender: FDA-Public Use
  Company Number: DK-NOVOPROD-347638

PATIENT
  Age: 78 Year
  Sex: Female
  Weight: 89.8 kg

DRUGS (3)
  1. LIRAGLUTIDE FLEXPEN [Suspect]
     Indication: TYPE 2 DIABETES MELLITUS
     Dosage: 0.6 MG, QD
     Route: 058
     Dates: start: 20120314, end: 20120317
  2. LIRAGLUTIDE FLEXPEN [Suspect]
     Dosage: UNK
     Dates: start: 20120320
  3. SELEXID                            /00445301/ [Concomitant]
     Indication: CYSTITIS
     Dosage: 1200 MG, QD
     Dates: start: 20120316

REACTIONS (1)
  - HYPOGLYCAEMIC UNCONSCIOUSNESS [None]
